FAERS Safety Report 10866368 (Version 1)
Quarter: 2015Q1

REPORT INFORMATION
  Report Type: Spontaneous
  Country: US (occurrence: None)
  Receive Date: 20150219
  Receipt Date: 20150219
  Transmission Date: 20150721
  Serious: Yes (Other)
  Sender: FDA-Public Use
  Company Number: None

PATIENT
  Age: 36 Year
  Sex: Female
  Weight: 200.94 kg

DRUGS (2)
  1. TRAMADOL 50MG PRICARA [Suspect]
     Active Substance: TRAMADOL
     Indication: MENSTRUATION IRREGULAR
     Dosage: 50 MG 4-6 HRS PRN P.O.
     Route: 048
     Dates: start: 2012
  2. TRAMADOL 50MG PRICARA [Suspect]
     Active Substance: TRAMADOL
     Indication: DYSMENORRHOEA
     Dosage: 50 MG 4-6 HRS PRN P.O.
     Route: 048
     Dates: start: 2012

REACTIONS (2)
  - Drug ineffective [None]
  - Product substitution issue [None]

NARRATIVE: CASE EVENT DATE: 20130916
